FAERS Safety Report 10574739 (Version 1)
Quarter: 2014Q4

REPORT INFORMATION
  Report Type: Spontaneous
  Country: CH (occurrence: CH)
  Receive Date: 20141110
  Receipt Date: 20141110
  Transmission Date: 20150529
  Serious: Yes (Other)
  Sender: FDA-Public Use
  Company Number: CH-ACTAVIS-2014-23756

PATIENT
  Age: 61 Year
  Sex: Female

DRUGS (6)
  1. IBANDRONIC ACID (UNKNOWN) [Suspect]
     Active Substance: IBANDRONIC ACID
     Indication: OSTEOPOROSIS
     Dosage: MONTHLY
     Route: 042
     Dates: start: 201006
  2. PREDNISONE (UNKNOWN) [Suspect]
     Active Substance: PREDNISONE
     Indication: HEPATITIS
     Dosage: 40 MG, DAILY
     Route: 065
  3. ACETYLSALICYLIC ACID [Concomitant]
     Active Substance: ASPIRIN
     Indication: CARDIOVASCULAR EVENT PROPHYLAXIS
     Dosage: UNK
     Route: 065
  4. HYDROXYCHLOROQUINE [Concomitant]
     Active Substance: HYDROXYCHLOROQUINE
     Indication: SYSTEMIC LUPUS ERYTHEMATOSUS
     Dosage: UNK
     Route: 065
  5. BUDESONIDE (UNKNOWN) [Suspect]
     Active Substance: BUDESONIDE
     Indication: HEPATITIS
     Dosage: 9 MG, DAILY
     Route: 065
  6. ATORVASTATIN [Concomitant]
     Active Substance: ATORVASTATIN
     Indication: DYSLIPIDAEMIA
     Dosage: UNK
     Route: 065

REACTIONS (7)
  - Weight increased [Unknown]
  - Hirsutism [Unknown]
  - Generalised oedema [Unknown]
  - Hepatitis [Recovered/Resolved]
  - Hypertension [Unknown]
  - Drug intolerance [Unknown]
  - Affect lability [Unknown]
